FAERS Safety Report 9995993 (Version 1)
Quarter: 2014Q1

REPORT INFORMATION
  Report Type: Report from Study
  Country: DE (occurrence: TR)
  Receive Date: 20140311
  Receipt Date: 20140311
  Transmission Date: 20141002
  Serious: Yes (Hospitalization)
  Sender: FDA-Public Use
  Company Number: DE-ACTELION-A-NJ2014-95967

PATIENT
  Age: 61 Year
  Sex: Female
  Weight: 70 kg

DRUGS (1)
  1. VENTAVIS [Suspect]
     Indication: PRODUCT USED FOR UNKNOWN INDICATION
     Dosage: FREQUENCY 6X1
     Route: 055
     Dates: start: 20131223

REACTIONS (1)
  - Pyrexia [Unknown]
